FAERS Safety Report 13385492 (Version 1)
Quarter: 2017Q1

REPORT INFORMATION
  Report Type: Spontaneous
  Country: FR (occurrence: FR)
  Receive Date: 20170330
  Receipt Date: 20170330
  Transmission Date: 20170429
  Serious: Yes (Life-Threatening, Hospitalization, Other)
  Sender: FDA-Public Use
  Company Number: FR-PFIZER INC-2017133533

PATIENT
  Age: 24 Year
  Sex: Female

DRUGS (10)
  1. ACUPAN [Concomitant]
     Active Substance: NEFOPAM HYDROCHLORIDE
     Dosage: 6 DF, DAILY
     Route: 042
     Dates: start: 20170116, end: 20170118
  2. HYDREA [Concomitant]
     Active Substance: HYDROXYUREA
     Dosage: 4 MG, 3X/DAY
     Route: 048
     Dates: start: 20170116, end: 20170118
  3. ARACYTINE [Suspect]
     Active Substance: CYTARABINE
     Indication: ACUTE MYELOID LEUKAEMIA
     Dosage: 4600 MG, DAILY ACCORDING TO CYCLE
     Route: 042
     Dates: start: 20170119
  4. MIDAZOLAM [Concomitant]
     Active Substance: MIDAZOLAM HYDROCHLORIDE
     Dosage: 3 MG, UNK
     Dates: start: 20170119
  5. CONTRAMAL [Concomitant]
     Active Substance: TRAMADOL HYDROCHLORIDE
     Dosage: 4 DF, DAILY
     Dates: start: 201701
  6. AMSALYO [Suspect]
     Active Substance: AMSACRINE
     Indication: ACUTE MYELOID LEUKAEMIA
     Dosage: 306 MG, 2X/DAY
     Route: 042
     Dates: start: 20170119, end: 20170123
  7. TRANXENE T-TAB [Concomitant]
     Active Substance: CLORAZEPATE DIPOTASSIUM
     Dosage: 20 MG, UNK
     Dates: start: 20170117
  8. FASTURTEC [Concomitant]
     Active Substance: RASBURICASE
     Dosage: 0.2 MG/KG, DAILY
     Dates: start: 20170116, end: 20170118
  9. PRIMPERAN [Concomitant]
     Active Substance: METOCLOPRAMIDE HYDROCHLORIDE
     Dosage: 6 DF, DAILY
     Route: 042
  10. OXYNORM [Concomitant]
     Active Substance: OXYCODONE HYDROCHLORIDE
     Dosage: UNK
     Dates: start: 20170119

REACTIONS (8)
  - Prothrombin time ratio decreased [Unknown]
  - Bradycardia [Recovered/Resolved]
  - Thrombocytopenia [Unknown]
  - Blood calcium decreased [Unknown]
  - Blood lactate dehydrogenase increased [Unknown]
  - Haemoglobin decreased [Unknown]
  - Blood potassium increased [Unknown]
  - Blood phosphorus increased [Unknown]

NARRATIVE: CASE EVENT DATE: 20170119
